FAERS Safety Report 4785569-X (Version None)
Quarter: 2005Q4

REPORT INFORMATION
  Report Type: 
  Country: None (occurrence: None)
  Receive Date: 20051003
  Receipt Date: 20050530
  Transmission Date: 20060501
  Serious: Yes (Death, Hospitalization)
  Sender: FDA-Public Use
  Company Number: DE-GLAXOSMITHKLINE-B0382786A

PATIENT
  Age: 59 Year
  Sex: Male
  Weight: 78 kg

DRUGS (12)
  1. TOPOTECAN [Suspect]
     Indication: SMALL CELL LUNG CANCER STAGE UNSPECIFIED
     Dosage: 1MGM2 PER DAY
     Route: 042
     Dates: start: 20050518, end: 20050522
  2. CISPLATIN [Suspect]
     Indication: SMALL CELL LUNG CANCER STAGE UNSPECIFIED
     Dosage: 75MGM2 PER DAY
     Route: 042
     Dates: start: 20050518, end: 20050518
  3. CONCOR [Concomitant]
  4. MST [Concomitant]
  5. NOVALGIN [Concomitant]
  6. PASPERTIN [Concomitant]
  7. PANTOZOL [Concomitant]
  8. ENALAPRIL [Concomitant]
  9. CEFOTIAM HYDROCHLORIDE [Concomitant]
  10. NITRO SPRAY [Concomitant]
  11. BETAISODONA [Concomitant]
  12. AMPHOMORONAL [Concomitant]

REACTIONS (8)
  - ANGINA PECTORIS [None]
  - BLOOD POTASSIUM DECREASED [None]
  - CARDIAC DISORDER [None]
  - DIARRHOEA [None]
  - HAEMOGLOBIN DECREASED [None]
  - HYPOVOLAEMIA [None]
  - PANCREATITIS [None]
  - VOMITING [None]
